FAERS Safety Report 4549656-3 (Version None)
Quarter: 2005Q1

REPORT INFORMATION
  Report Type: 
  Country: None (occurrence: None)
  Receive Date: 20050111
  Receipt Date: 20050104
  Transmission Date: 20050727
  Serious: Yes (Life-Threatening)
  Sender: FDA-Public Use
  Company Number: GB-GLAXOSMITHKLINE-B0363374A

PATIENT
  Age: 42 Year
  Sex: Male
  Weight: 89 kg

DRUGS (5)
  1. AVANDIA [Suspect]
     Indication: DIABETES MELLITUS NON-INSULIN-DEPENDENT
     Dosage: 4MG UNKNOWN
     Route: 048
     Dates: start: 20041005, end: 20041109
  2. METFORMIN HCL [Concomitant]
     Dosage: 1000MG THREE TIMES PER DAY
     Route: 048
  3. SILDENAFIL [Concomitant]
     Dosage: 50MG PER DAY
     Route: 048
  4. SIMVASTATIN [Concomitant]
     Dosage: 40MG PER DAY
     Route: 048
  5. CO-PROXAMOL [Concomitant]
     Route: 048

REACTIONS (1)
  - HALLUCINATION, VISUAL [None]
